FAERS Safety Report 15658088 (Version 2)
Quarter: 2018Q4

REPORT INFORMATION
  Report Type: Spontaneous
  Country: TR (occurrence: TR)
  Receive Date: 20181126
  Receipt Date: 20181211
  Transmission Date: 20190205
  Serious: Yes (Hospitalization)
  Sender: FDA-Public Use
  Company Number: PHHY2018TR165385

PATIENT

DRUGS (1)
  1. VERXANT [Suspect]
     Active Substance: SECUKINUMAB
     Indication: ANKYLOSING SPONDYLITIS
     Dosage: UNK
     Route: 065

REACTIONS (2)
  - Colitis ulcerative [Unknown]
  - Diarrhoea haemorrhagic [Unknown]
